FAERS Safety Report 8213063-2 (Version None)
Quarter: 2012Q1

REPORT INFORMATION
  Report Type: 
  Country: None (occurrence: None)
  Receive Date: 20120315
  Receipt Date: 20120313
  Transmission Date: 20120608
  Serious: Yes (Hospitalization)
  Sender: FDA-Public Use
  Company Number: IT-BAXTER-2012BH007489

PATIENT
  Age: 49 Year
  Sex: Female

DRUGS (6)
  1. DOXORUBICIN HCL [Suspect]
     Indication: BREAST CANCER
     Route: 042
     Dates: start: 20110817, end: 20110817
  2. NEULASTA [Concomitant]
     Indication: SUPPORTIVE CARE
     Route: 058
     Dates: start: 20110818, end: 20110818
  3. CYCLOPHOSPHAMIDE [Suspect]
     Indication: BREAST CANCER
     Route: 042
     Dates: start: 20110817, end: 20110817
  4. DEXAMETHASONE [Concomitant]
     Indication: ANTIEMETIC SUPPORTIVE CARE
     Route: 042
     Dates: start: 20110817, end: 20110817
  5. LEVOTHYROXINE SODIUM [Concomitant]
     Indication: HYPOTHYROIDISM
     Route: 048
     Dates: start: 20110501, end: 20120221
  6. KYTRIL [Concomitant]
     Indication: ANTIEMETIC SUPPORTIVE CARE
     Route: 042
     Dates: start: 20110817, end: 20110817

REACTIONS (6)
  - THROMBOCYTOPENIA [None]
  - MUCOSAL INFLAMMATION [None]
  - EPISTAXIS [None]
  - FEBRILE NEUTROPENIA [None]
  - DYSPHAGIA [None]
  - ANAEMIA [None]
